FAERS Safety Report 13115050 (Version 1)
Quarter: 2017Q1

REPORT INFORMATION
  Report Type: Spontaneous
  Country: FR (occurrence: FR)
  Receive Date: 20170113
  Receipt Date: 20170113
  Transmission Date: 20170428
  Serious: Yes (Hospitalization)
  Sender: FDA-Public Use
  Company Number: FR-SA-2017SA003548

PATIENT
  Age: 60 Year
  Sex: Male
  Weight: 80 kg

DRUGS (16)
  1. CORTANCYL [Concomitant]
     Active Substance: PREDNISONE
     Dates: start: 20161127, end: 20161130
  2. APREPITANT. [Concomitant]
     Active Substance: APREPITANT
  3. BISOCE [Concomitant]
     Active Substance: BISOPROLOL
     Dates: end: 20161202
  4. MYCOSTATIN [Concomitant]
     Active Substance: NYSTATIN
  5. NEFOPAM [Concomitant]
     Active Substance: NEFOPAM
  6. FUNGIZONE [Concomitant]
     Active Substance: AMPHOTERICIN B
     Dosage: ORAL SUSPENSION
  7. ONDANSETRON [Concomitant]
     Active Substance: ONDANSETRON
  8. OXYCONTIN [Concomitant]
     Active Substance: OXYCODONE HYDROCHLORIDE
  9. FASTURTEC [Suspect]
     Active Substance: RASBURICASE
     Indication: BRONCHIAL CARCINOMA
     Route: 042
     Dates: start: 20161202, end: 20161204
  10. KAYEXALATE [Concomitant]
     Active Substance: SODIUM POLYSTYRENE SULFONATE
     Dates: start: 20161202
  11. OXYNORMORO [Concomitant]
     Active Substance: OXYCODONE
  12. CARBOPLATIN. [Suspect]
     Active Substance: CARBOPLATIN
     Indication: BRONCHIAL CARCINOMA
     Route: 065
     Dates: start: 20161128, end: 20161128
  13. CALCIPARINE [Concomitant]
     Active Substance: HEPARIN CALCIUM
     Dates: end: 20161203
  14. ETOPOSIDE. [Suspect]
     Active Substance: ETOPOSIDE
     Indication: BRONCHIAL CARCINOMA
     Route: 042
     Dates: start: 20161128, end: 20161130
  15. METHYLPREDNISOLONE. [Concomitant]
     Active Substance: METHYLPREDNISOLONE
     Indication: BRONCHIAL CARCINOMA
     Dates: start: 20161128
  16. LANSOPRAZOLE. [Concomitant]
     Active Substance: LANSOPRAZOLE
     Dates: end: 20161204

REACTIONS (7)
  - Haematoma [Unknown]
  - Leukopenia [Recovered/Resolved]
  - Gingival bleeding [Unknown]
  - Thrombocytopenia [Not Recovered/Not Resolved]
  - Anaemia [Not Recovered/Not Resolved]
  - Epistaxis [Unknown]
  - Aplasia [Recovering/Resolving]

NARRATIVE: CASE EVENT DATE: 20161203
